FAERS Safety Report 5672082-0 (Version None)
Quarter: 2008Q1

REPORT INFORMATION
  Report Type: 
  Country: None (occurrence: None)
  Receive Date: 20080317
  Receipt Date: 20080317
  Transmission Date: 20080703
  Serious: Yes (Other)
  Sender: FDA-Public Use
  Company Number: None

PATIENT
  Sex: Male
  Weight: 83.9154 kg

DRUGS (1)
  1. CAMPRAL [Suspect]
     Indication: ALCOHOL ABUSE
     Dosage: 666 MG TID PO
     Route: 048
     Dates: start: 20080102, end: 20080210

REACTIONS (1)
  - DERMATITIS EXFOLIATIVE [None]
